FAERS Safety Report 15220823 (Version 1)
Quarter: 2018Q3

REPORT INFORMATION
  Report Type: Spontaneous
  Country: US (occurrence: US)
  Receive Date: 20180731
  Receipt Date: 20180731
  Transmission Date: 20181010
  Serious: Yes (Hospitalization, Other)
  Sender: FDA-Public Use
  Company Number: US-BAYER-2018-136674

PATIENT
  Age: 67 Year
  Sex: Male

DRUGS (4)
  1. ACETYLSALICYLIC ACID (} 100 MG) [Suspect]
     Active Substance: ASPIRIN
  2. TACROLIMUS. [Concomitant]
     Active Substance: TACROLIMUS
  3. EVEROLIMUS. [Concomitant]
     Active Substance: EVEROLIMUS
  4. PREDNISONE. [Concomitant]
     Active Substance: PREDNISONE

REACTIONS (6)
  - Foreign body aspiration [Recovered/Resolved]
  - Bronchial haemorrhage [None]
  - Choking [None]
  - Wrong technique in product usage process [None]
  - Respiratory distress [Recovered/Resolved]
  - Bronchial obstruction [None]
